FAERS Safety Report 10361416 (Version 3)
Quarter: 2014Q3

REPORT INFORMATION
  Report Type: Spontaneous
  Country: US (occurrence: US)
  Receive Date: 20140805
  Receipt Date: 20140922
  Transmission Date: 20150326
  Serious: Yes (Hospitalization, Other)
  Sender: FDA-Public Use
  Company Number: US-AMGEN-USASP2014058525

PATIENT
  Age: 58 Year
  Sex: Female
  Weight: 68.02 kg

DRUGS (4)
  1. ENBREL [Suspect]
     Active Substance: ETANERCEPT
     Indication: RHEUMATOID ARTHRITIS
     Dosage: 50 MG, QWK
     Route: 058
     Dates: start: 20130524
  2. METHOTREXATE [Concomitant]
     Active Substance: METHOTREXATE
     Dosage: 5 TABLETS WEEKLY
     Route: 048
     Dates: start: 201104
  3. LEUCOVORIN                         /00566701/ [Concomitant]
     Active Substance: LEUCOVORIN
     Dosage: ONE TABLET WEEKLY
     Route: 048
  4. MOBIC [Concomitant]
     Active Substance: MELOXICAM
     Dosage: 2.5 MG, QD (1TAB)
     Route: 048

REACTIONS (6)
  - Stomatitis [Unknown]
  - Cataract [Not Recovered/Not Resolved]
  - Impaired healing [Recovered/Resolved]
  - Fatigue [Recovered/Resolved]
  - Tongue disorder [Unknown]
  - Tongue ulceration [Recovered/Resolved]

NARRATIVE: CASE EVENT DATE: 201405
